FAERS Safety Report 26142752 (Version 2)
Quarter: 2025Q4

REPORT INFORMATION
  Report Type: Spontaneous
  Country: EU (occurrence: EU)
  Receive Date: 20251211
  Receipt Date: 20251215
  Transmission Date: 20260117
  Serious: Yes (Hospitalization, Other)
  Sender: NOVARTIS
  Company Number: EU-002147023-NVSC2025DE169041

PATIENT
  Age: 66 Year
  Sex: Male

DRUGS (2)
  1. IMATINIB [Suspect]
     Active Substance: IMATINIB
     Indication: Product used for unknown indication
     Dosage: UNK
     Route: 065
     Dates: end: 202509
  2. SCEMBLIX [Suspect]
     Active Substance: ASCIMINIB HYDROCHLORIDE
     Indication: Chronic myeloid leukaemia
     Dosage: UNK
     Route: 065
     Dates: start: 202510

REACTIONS (15)
  - Back pain [Not Recovered/Not Resolved]
  - Blood glucose increased [Recovering/Resolving]
  - Musculoskeletal pain [Not Recovered/Not Resolved]
  - Pollakiuria [Unknown]
  - Epistaxis [Not Recovered/Not Resolved]
  - C-reactive protein increased [Unknown]
  - Rhinorrhoea [Unknown]
  - Fatigue [Unknown]
  - Myalgia [Unknown]
  - Arthralgia [Recovering/Resolving]
  - Bone neoplasm [Recovering/Resolving]
  - Synovial cyst [Recovering/Resolving]
  - Dizziness [Unknown]
  - Pain [Not Recovered/Not Resolved]
  - Arthralgia [Recovering/Resolving]

NARRATIVE: CASE EVENT DATE: 20250101
